FAERS Safety Report 19447476 (Version 2)
Quarter: 2021Q3

REPORT INFORMATION
  Report Type: Report from Study
  Country: CL (occurrence: CL)
  Receive Date: 20210622
  Receipt Date: 20210707
  Transmission Date: 20211014
  Serious: Yes (Hospitalization, Other)
  Sender: FDA-Public Use
  Company Number: NVSC2021CL137690

PATIENT
  Age: 14 Year
  Sex: Female
  Weight: 45 kg

DRUGS (1)
  1. OMNITROPE [Suspect]
     Active Substance: SOMATROPIN
     Indication: HYPOPITUITARISM
     Dosage: 4.8 IU, QD
     Route: 058
     Dates: start: 20150930

REACTIONS (9)
  - Face injury [Recovered/Resolved]
  - Product dose omission issue [Recovered/Resolved]
  - COVID-19 [Recovered/Resolved]
  - Vertigo [Recovered/Resolved]
  - Nasopharyngitis [Recovered/Resolved]
  - Hormone level abnormal [Recovered/Resolved]
  - Syncope [Recovered/Resolved]
  - Pyrexia [Recovered/Resolved]
  - Dizziness [Recovered/Resolved]

NARRATIVE: CASE EVENT DATE: 20201207
